FAERS Safety Report 14599152 (Version 1)
Quarter: 2018Q1

REPORT INFORMATION
  Report Type: Spontaneous
  Country: US (occurrence: US)
  Receive Date: 20180303
  Receipt Date: 20180303
  Transmission Date: 20180509
  Serious: Yes (Disabling, Other)
  Sender: FDA-Public Use
  Company Number: None

PATIENT
  Age: 67 Year
  Sex: Female
  Weight: 94.5 kg

DRUGS (14)
  1. RANITIDINE. [Concomitant]
     Active Substance: RANITIDINE
  2. LEVOFLOXACIN. [Suspect]
     Active Substance: LEVOFLOXACIN
     Indication: SINUSITIS
     Dosage: ?          QUANTITY:1 CAPSULE(S);?
     Route: 048
     Dates: start: 20180216, end: 20180222
  3. JUICE PLUS [Concomitant]
     Active Substance: DIETARY SUPPLEMENT
  4. VITAMIN D3 [Concomitant]
     Active Substance: CHOLECALCIFEROL
  5. AMLODIPINE [Concomitant]
     Active Substance: AMLODIPINE BESYLATE
  6. GLUCOSAMINE, CHONDROITIN [Concomitant]
  7. SALINE RINSE [Concomitant]
  8. PRAVASTATIN. [Concomitant]
     Active Substance: PRAVASTATIN
  9. ALPHA LIPOIC ACIDS [Concomitant]
  10. INDAPAMIDE. [Concomitant]
     Active Substance: INDAPAMIDE
  11. WOMENS 50+ VITAMIN/DAILY [Concomitant]
  12. CBD OIL [Concomitant]
     Active Substance: CANNABIDIOL
  13. PROBIOTIC [Concomitant]
     Active Substance: PROBIOTICS NOS
  14. NAPROXEN. [Concomitant]
     Active Substance: NAPROXEN

REACTIONS (2)
  - Tendonitis [None]
  - Hypersensitivity [None]

NARRATIVE: CASE EVENT DATE: 20180216
